FAERS Safety Report 20997395 (Version 2)
Quarter: 2022Q3

REPORT INFORMATION
  Report Type: Spontaneous
  Country: US (occurrence: US)
  Receive Date: 20220623
  Receipt Date: 20220822
  Transmission Date: 20221026
  Serious: No
  Sender: FDA-Public Use
  Company Number: US-BRISTOL-MYERS SQUIBB COMPANY-2022-053015

PATIENT
  Age: 79 Year
  Sex: Male

DRUGS (1)
  1. POMALYST [Suspect]
     Active Substance: POMALIDOMIDE
     Indication: Plasma cell myeloma
     Dosage: FREQUENCY : TAKE 1 CAPSULE BY MOUTH DAILY ON DAYS 1-21 OF EACH 28 DAY CYCLE
     Route: 048
     Dates: start: 20220603

REACTIONS (1)
  - Fatigue [Recovered/Resolved]
